FAERS Safety Report 6709670-6 (Version None)
Quarter: 2010Q2

REPORT INFORMATION
  Report Type: 
  Country: None (occurrence: None)
  Receive Date: 20100503
  Receipt Date: 20100503
  Transmission Date: 20101027
  Serious: Yes (Hospitalization)
  Sender: FDA-Public Use
  Company Number: None

PATIENT
  Age: 5 Year
  Sex: Male
  Weight: 16.7831 kg

DRUGS (2)
  1. CHILDREN'S MOTRIN [Suspect]
     Indication: PYREXIA
     Dosage: 4 ML EVERY 4 HRS
     Dates: start: 20100428, end: 20100430
  2. CHILDREN'S MOTRIN [Suspect]
     Indication: VOMITING
     Dosage: 4 ML EVERY 4 HRS
     Dates: start: 20100428, end: 20100430

REACTIONS (5)
  - DIARRHOEA [None]
  - DRUG TOXICITY [None]
  - FOOD POISONING [None]
  - PYREXIA [None]
  - VOMITING [None]
